FAERS Safety Report 25070043 (Version 1)
Quarter: 2025Q1

REPORT INFORMATION
  Report Type: Spontaneous
  Country: US (occurrence: None)
  Receive Date: 20250311
  Receipt Date: 20250311
  Transmission Date: 20250409
  Serious: Yes (Other)
  Sender: FDA-CTU
  Company Number: None

PATIENT
  Age: 36 Year
  Sex: Female
  Weight: 89.36 kg

DRUGS (1)
  1. FERAHEME [Suspect]
     Active Substance: FERUMOXYTOL NON-STOICHIOMETRIC MAGNETITE
     Route: 011
     Dates: start: 20250310, end: 20250310

REACTIONS (6)
  - Sneezing [None]
  - Dry mouth [None]
  - Paraesthesia oral [None]
  - Nasal congestion [None]
  - Anxiety [None]
  - Tachycardia [None]

NARRATIVE: CASE EVENT DATE: 20250310
